FAERS Safety Report 5814440-7 (Version None)
Quarter: 2008Q3

REPORT INFORMATION
  Report Type: 
  Country: None (occurrence: None)
  Receive Date: 20080718
  Receipt Date: 20080709
  Transmission Date: 20090109
  Serious: Yes (Hospitalization)
  Sender: FDA-Public Use
  Company Number: US-JNJFOC-20080503785

PATIENT
  Sex: Male
  Weight: 77.11 kg

DRUGS (4)
  1. INVEGA [Suspect]
     Route: 048
  2. INVEGA [Suspect]
     Indication: SCHIZOPHRENIA
     Route: 048
  3. CAMPRAL [Concomitant]
     Indication: ALCOHOL WITHDRAWAL SYNDROME
  4. DILANTIN [Concomitant]
     Indication: CONVULSION

REACTIONS (1)
  - ARRHYTHMIA [None]
